FAERS Safety Report 9418914 (Version 2)
Quarter: 2013Q3

REPORT INFORMATION
  Report Type: Spontaneous
  Country: IT (occurrence: IT)
  Receive Date: 20130725
  Receipt Date: 20130815
  Transmission Date: 20140515
  Serious: Yes (Hospitalization)
  Sender: FDA-Public Use
  Company Number: IT-JNJFOC-20130708841

PATIENT
  Age: 72 Year
  Sex: Male

DRUGS (6)
  1. IBUPROFEN UNSPECIFIED [Suspect]
     Indication: PAIN
     Dosage: 500 MG / 30 MG
     Route: 048
     Dates: start: 20130601, end: 20130610
  2. IBUPROFEN UNSPECIFIED [Suspect]
     Indication: POST-TRAUMATIC PAIN
     Dosage: 500 MG / 30 MG
     Route: 048
     Dates: start: 20130601, end: 20130610
  3. TACHIDOL [Suspect]
     Indication: PAIN
     Dosage: 500 MG / 30 MG
     Route: 048
     Dates: start: 20130605, end: 20130610
  4. TACHIDOL [Suspect]
     Indication: POST-TRAUMATIC PAIN
     Dosage: 500 MG / 30 MG
     Route: 048
     Dates: start: 20130605, end: 20130610
  5. MITTOVAL [Concomitant]
     Indication: PRODUCT USED FOR UNKNOWN INDICATION
     Route: 065
  6. AZARGA [Concomitant]
     Indication: PRODUCT USED FOR UNKNOWN INDICATION
     Dosage: 10 MG / ML + 5 MG / ML
     Route: 047

REACTIONS (3)
  - Asthenia [Unknown]
  - Haemolysis [Unknown]
  - Pancytopenia [Unknown]
